FAERS Safety Report 5647998-1 (Version None)
Quarter: 2008Q1

REPORT INFORMATION
  Report Type: 
  Country: None (occurrence: None)
  Receive Date: 20080131
  Receipt Date: 20071123
  Transmission Date: 20080703
  Serious: No
  Sender: FDA-Public Use
  Company Number: US200711006409

PATIENT
  Age: 84 Year
  Sex: Female
  Weight: 66.2 kg

DRUGS (17)
  1. BYETTA [Suspect]
     Indication: TYPE 2 DIABETES MELLITUS
     Dosage: 5, 10 UG, 2/D, SUBCUTANEOUS
     Route: 058
     Dates: start: 20050101, end: 20050101
  2. BYETTA [Suspect]
     Indication: TYPE 2 DIABETES MELLITUS
     Dosage: 5, 10 UG, 2/D, SUBCUTANEOUS
     Route: 058
     Dates: start: 20050101
  3. EXENATIDE PEN, DISPOSABLE DEVICE (EXENATIDE PEN) [Concomitant]
  4. MOBIC [Concomitant]
  5. ATACAND [Concomitant]
  6. AMLODIPINE [Concomitant]
  7. NEXIUM [Concomitant]
  8. VYTORIN [Concomitant]
  9. IMDUR [Concomitant]
  10. DIGOXIN [Concomitant]
  11. ASPIRIN [Concomitant]
  12. DARVOCET [Concomitant]
  13. NORVASC [Concomitant]
  14. ACTONEL [Concomitant]
  15. LEVOXYL [Concomitant]
  16. ALDACTAZINDE (HYDROCHLOROTHIAZIDE, SPIRONOLACTONE) [Concomitant]
  17. CYTOMEL [Concomitant]

REACTIONS (2)
  - DIPLOPIA [None]
  - VISUAL DISTURBANCE [None]
